FAERS Safety Report 25964006 (Version 1)
Quarter: 2025Q4

REPORT INFORMATION
  Report Type: Spontaneous
  Country: US (occurrence: US)
  Receive Date: 20251027
  Receipt Date: 20251027
  Transmission Date: 20260118
  Serious: No
  Sender: ABBVIE
  Company Number: US-ABBVIE-6509799

PATIENT
  Age: 50 Year
  Sex: Female
  Weight: 68.038 kg

DRUGS (2)
  1. QULIPTA [Suspect]
     Active Substance: ATOGEPANT
     Indication: Migraine
     Dosage: FORM STRENGTH: 60 MILLIGRAM
     Route: 048
     Dates: end: 202506
  2. UBRELVY [Suspect]
     Active Substance: UBROGEPANT
     Indication: Migraine
     Dosage: TIME INTERVAL: AS NECESSARY: START DATE: 2020 OR 2021. ?FORM STRENGTH: 100 MILLIGRAM.
     Route: 048

REACTIONS (2)
  - Constipation [Not Recovered/Not Resolved]
  - Rectal prolapse [Recovering/Resolving]

NARRATIVE: CASE EVENT DATE: 20250401
